FAERS Safety Report 6794024-7 (Version None)
Quarter: 2010Q2

REPORT INFORMATION
  Report Type: 
  Country: None (occurrence: None)
  Receive Date: 20100624
  Receipt Date: 20051121
  Transmission Date: 20101027
  Serious: No
  Sender: FDA-Public Use
  Company Number: US-PFIZER INC-23100249

PATIENT
  Sex: Male

DRUGS (2)
  1. ARGATROBAN [Suspect]
     Route: 042
     Dates: start: 20051115, end: 20051119
  2. LEVOPHED [Concomitant]

REACTIONS (2)
  - COAGULATION TIME PROLONGED [None]
  - LIVER FUNCTION TEST ABNORMAL [None]
